FAERS Safety Report 9659839 (Version 2)
Quarter: 2013Q4

REPORT INFORMATION
  Report Type: Report from Study
  Country: US (occurrence: US)
  Receive Date: 20131031
  Receipt Date: 20131212
  Transmission Date: 20140711
  Serious: Yes (Hospitalization)
  Sender: FDA-Public Use
  Company Number: US-ASTELLAS-2013US011267

PATIENT
  Age: 58 Year
  Sex: Male

DRUGS (15)
  1. ERLOTINIB TABLET [Suspect]
     Indication: BRAIN NEOPLASM MALIGNANT
     Dosage: 2000 MG, QW
     Route: 048
     Dates: start: 20130910, end: 20131016
  2. PANTOPRAZOLE [Concomitant]
     Indication: PRODUCT USED FOR UNKNOWN INDICATION
     Dosage: 10 MG, UID/QD
     Route: 048
  3. PANTOPRAZOLE [Concomitant]
     Dosage: UNK
     Route: 043
  4. LEVETIRACETAM [Concomitant]
     Indication: PRODUCT USED FOR UNKNOWN INDICATION
     Dosage: 500 MG, Q12 HOURS
     Route: 065
  5. ENOXAPARIN [Concomitant]
     Indication: PRODUCT USED FOR UNKNOWN INDICATION
     Dosage: 40 MG, OTHER 1 IN 24HR
     Route: 058
  6. SULFAMETHOXAZOLE AND TRIMETHOPRIM [Concomitant]
     Indication: PRODUCT USED FOR UNKNOWN INDICATION
     Dosage: 800 MG, UID/QD-160M
     Route: 048
  7. DOCUSATE SOD [Concomitant]
     Indication: PRODUCT USED FOR UNKNOWN INDICATION
     Dosage: 300 MG, OTHER AT BED TIME
     Route: 048
  8. INSULIN ASPART [Concomitant]
     Indication: PRODUCT USED FOR UNKNOWN INDICATION
     Dosage: UNK-BEFORE MEALS AT BED TIME.
     Route: 065
  9. GLUCOSE [Concomitant]
     Indication: PRODUCT USED FOR UNKNOWN INDICATION
     Dosage: UNK-AT BED TIME
     Route: 065
  10. SENNA                              /00142201/ [Concomitant]
     Indication: PRODUCT USED FOR UNKNOWN INDICATION
     Dosage: 2 DF, QHS-BED TIME NIGHTLY
     Route: 048
  11. PARACETAMOL [Concomitant]
     Indication: PRODUCT USED FOR UNKNOWN INDICATION
     Dosage: 650 MG, Q6W
     Route: 048
  12. ALUMINIUM-MAGNESIUM HYDROXIDE W/SIMETHICONE [Concomitant]
     Indication: PRODUCT USED FOR UNKNOWN INDICATION
     Dosage: 15 ML, OTHER-EVERY 4 HOURS
     Route: 065
  13. DEXTROSE [Concomitant]
     Indication: PRODUCT USED FOR UNKNOWN INDICATION
     Dosage: 10 MG, OTHER-Q 15 MIN
     Route: 048
  14. DEXAMETHASONE [Concomitant]
     Indication: PRODUCT USED FOR UNKNOWN INDICATION
     Dosage: 8 MG, UNKNOWN/D
     Route: 017
  15. DOCUSATE SODIUM [Concomitant]
     Indication: PRODUCT USED FOR UNKNOWN INDICATION
     Dosage: 300 MG, OTHER
     Route: 048

REACTIONS (5)
  - Off label use [Unknown]
  - Overdose [Unknown]
  - Cerebral haemorrhage [Recovered/Resolved]
  - Hemiparesis [Recovered/Resolved]
  - Confusional state [Recovered/Resolved]
